FAERS Safety Report 20664608 (Version 1)
Quarter: 2022Q2

REPORT INFORMATION
  Report Type: Spontaneous
  Country: HR (occurrence: HR)
  Receive Date: 20220401
  Receipt Date: 20220401
  Transmission Date: 20220720
  Serious: Yes (Other)
  Sender: FDA-Public Use
  Company Number: None

PATIENT
  Sex: Female

DRUGS (3)
  1. XANAX XR [Suspect]
     Active Substance: ALPRAZOLAM
     Dosage: 30 MG, (ONE BLISTER)
     Route: 048
     Dates: start: 20211117, end: 20211117
  2. OXAZEPAM [Suspect]
     Active Substance: OXAZEPAM
     Dosage: 450 MG, (ONE BLISTER)
     Route: 048
     Dates: start: 20211117, end: 20211117
  3. LORAZEPAM [Suspect]
     Active Substance: LORAZEPAM
     Dosage: (ONE BLISTER)
     Route: 048
     Dates: start: 20211117, end: 20211117

REACTIONS (2)
  - Intentional overdose [Unknown]
  - Suicide attempt [Unknown]

NARRATIVE: CASE EVENT DATE: 20211117
